FAERS Safety Report 16796239 (Version 1)
Quarter: 2019Q3

REPORT INFORMATION
  Report Type: Spontaneous
  Country: TR (occurrence: TR)
  Receive Date: 20190911
  Receipt Date: 20190911
  Transmission Date: 20191005
  Serious: Yes (Other)
  Sender: FDA-Public Use
  Company Number: TR-JNJFOC-20190907144

PATIENT
  Age: 70 Month
  Sex: Male

DRUGS (1)
  1. CONCERTA [Suspect]
     Active Substance: METHYLPHENIDATE HYDROCHLORIDE
     Indication: ATTENTION DEFICIT/HYPERACTIVITY DISORDER
     Dosage: IMMEDIATE-RELEASE
     Route: 065

REACTIONS (3)
  - Priapism [Recovered/Resolved]
  - Off label use [Unknown]
  - Product use issue [Unknown]
